FAERS Safety Report 17106253 (Version 1)
Quarter: 2019Q4

REPORT INFORMATION
  Report Type: Spontaneous
  Country: GB (occurrence: GB)
  Receive Date: 20191203
  Receipt Date: 20191203
  Transmission Date: 20200122
  Serious: Yes (Death)
  Sender: FDA-Public Use
  Company Number: GB-ITALFARMACO SPA-2077418

PATIENT
  Sex: Male

DRUGS (1)
  1. TEGLUTIK [Suspect]
     Active Substance: RILUZOLE

REACTIONS (1)
  - Death [Fatal]
